FAERS Safety Report 11135725 (Version 1)
Quarter: 2015Q2

REPORT INFORMATION
  Report Type: Report from Study
  Country: US (occurrence: US)
  Receive Date: 20150526
  Receipt Date: 20150526
  Transmission Date: 20150821
  Serious: No
  Sender: FDA-Public Use
  Company Number: US-MALLINCKRODT-T201502101

PATIENT
  Age: 44 Year
  Sex: Female

DRUGS (2)
  1. H.P. ACTHAR [Suspect]
     Active Substance: CORTICOTROPIN
     Dosage: 80 UNITS PER DAY
     Route: 065
     Dates: start: 20140729, end: 20140804
  2. H.P. ACTHAR [Suspect]
     Active Substance: CORTICOTROPIN
     Indication: RELAPSING-REMITTING MULTIPLE SCLEROSIS
     Dosage: 80 UNITS PER DAY
     Route: 065
     Dates: start: 20130211, end: 20130218

REACTIONS (5)
  - Vomiting [Unknown]
  - Nervousness [Unknown]
  - Gastrointestinal tract irritation [Unknown]
  - Nausea [Unknown]
  - Restlessness [Unknown]
